FAERS Safety Report 7977381-5 (Version None)
Quarter: 2011Q4

REPORT INFORMATION
  Report Type: 
  Country: None (occurrence: None)
  Receive Date: 20111213
  Receipt Date: 20111102
  Transmission Date: 20120403
  Serious: No
  Sender: FDA-Public Use
  Company Number: US-AMGEN-USASP2011057329

PATIENT
  Sex: Male

DRUGS (3)
  1. ASPIRIN [Concomitant]
     Dosage: UNK
  2. ENBREL [Suspect]
     Indication: PSORIASIS
     Dosage: 50 MG, 2 TIMES/WK
     Dates: start: 20111001
  3. SIMVASTATIN [Concomitant]
     Dosage: UNK

REACTIONS (1)
  - NASOPHARYNGITIS [None]
